FAERS Safety Report 11801562 (Version 1)
Quarter: 2015Q4

REPORT INFORMATION
  Report Type: Spontaneous
  Country: US (occurrence: None)
  Receive Date: 20151203
  Receipt Date: 20151203
  Transmission Date: 20160305
  Serious: Yes (Hospitalization)
  Sender: FDA-Public Use
  Company Number: None

PATIENT
  Age: 20 Year
  Sex: Female
  Weight: 107.96 kg

DRUGS (5)
  1. LAMOTRIGINE 50 MG [Suspect]
     Active Substance: LAMOTRIGINE
     Indication: MOOD ALTERED
     Dosage: 1
     Route: 048
  2. LAMOTRIGINE 50 MG [Suspect]
     Active Substance: LAMOTRIGINE
     Indication: ANXIETY
     Dosage: 1
     Route: 048
  3. BABY ASPIRIN [Concomitant]
     Active Substance: ASPIRIN
  4. LAMOTRIGINE 50 MG [Suspect]
     Active Substance: LAMOTRIGINE
     Indication: PANIC ATTACK
     Dosage: 1
     Route: 048
  5. BITYH CONTROL-NEXPLANON [Concomitant]

REACTIONS (2)
  - Impaired work ability [None]
  - Stevens-Johnson syndrome [None]

NARRATIVE: CASE EVENT DATE: 20151104
